FAERS Safety Report 15590691 (Version 2)
Quarter: 2018Q4

REPORT INFORMATION
  Report Type: Spontaneous
  Country: GB (occurrence: GB)
  Receive Date: 20181106
  Receipt Date: 20181120
  Transmission Date: 20190205
  Serious: Yes (Other)
  Sender: FDA-Public Use
  Company Number: PHHY2018GB145788

PATIENT
  Age: 13 Year
  Sex: Female

DRUGS (7)
  1. MELPHALAN. [Suspect]
     Active Substance: MELPHALAN
     Indication: JUVENILE IDIOPATHIC ARTHRITIS
  2. ALEMTUZUMAB [Suspect]
     Active Substance: ALEMTUZUMAB
     Indication: JUVENILE IDIOPATHIC ARTHRITIS
  3. MELPHALAN. [Suspect]
     Active Substance: MELPHALAN
     Indication: BONE MARROW CONDITIONING REGIMEN
     Dosage: 140 MG/M2, QD (DAY 3)
     Route: 065
     Dates: start: 2014, end: 2014
  4. ANAKINRA [Concomitant]
     Active Substance: ANAKINRA
     Indication: ARTHRITIS
     Dosage: UNK
     Route: 065
  5. ALEMTUZUMAB [Suspect]
     Active Substance: ALEMTUZUMAB
     Indication: BONE MARROW CONDITIONING REGIMEN
     Dosage: 0.2 MG/KG, QD (FROM DAYS 8 TO 4)
     Route: 065
     Dates: start: 2014
  6. FLUDARABINE [Suspect]
     Active Substance: FLUDARABINE PHOSPHATE
     Indication: BONE MARROW CONDITIONING REGIMEN
     Dosage: 30 MG/M2, QD (FROM DAYS 7 TO 3)
     Route: 065
     Dates: start: 2014
  7. CYCLOSPORINE. [Concomitant]
     Active Substance: CYCLOSPORINE
     Indication: PROPHYLAXIS AGAINST GRAFT VERSUS HOST DISEASE
     Dosage: UNK
     Route: 065

REACTIONS (7)
  - Herpes zoster [Unknown]
  - Osteonecrosis [Unknown]
  - Viraemia [Unknown]
  - Adenovirus infection [Unknown]
  - Serratia infection [Unknown]
  - Off label use [Unknown]
  - Graft versus host disease [Unknown]
